FAERS Safety Report 16662955 (Version 3)
Quarter: 2019Q3

REPORT INFORMATION
  Report Type: Spontaneous
  Country: JP (occurrence: JP)
  Receive Date: 20190802
  Receipt Date: 20190917
  Transmission Date: 20191004
  Serious: Yes (Hospitalization, Other)
  Sender: FDA-Public Use
  Company Number: JP-009507513-1907JPN000997J

PATIENT
  Age: 68 Year
  Sex: Male

DRUGS (1)
  1. KEYTRUDA [Suspect]
     Active Substance: PEMBROLIZUMAB
     Indication: NON-SMALL CELL LUNG CANCER
     Dosage: 200 MILLIGRAM, Q3W
     Route: 041
     Dates: start: 20190205, end: 20190328

REACTIONS (7)
  - Pneumonitis [Recovered/Resolved]
  - Back pain [Recovered/Resolved]
  - Polymyalgia rheumatica [Recovered/Resolved]
  - Vasculitis [Recovered/Resolved]
  - Pain in extremity [Recovered/Resolved]
  - Sjogren^s syndrome [Recovered/Resolved]
  - Silent thyroiditis [Recovered/Resolved]

NARRATIVE: CASE EVENT DATE: 201902
